FAERS Safety Report 7414072-3 (Version None)
Quarter: 2011Q2

REPORT INFORMATION
  Report Type: 
  Country: None (occurrence: None)
  Receive Date: 20110414
  Receipt Date: 20110408
  Transmission Date: 20111010
  Serious: Yes (Other)
  Sender: FDA-Public Use
  Company Number: US-PFIZER INC-2011078430

PATIENT
  Sex: Male
  Weight: 68.027 kg

DRUGS (1)
  1. PRISTIQ [Suspect]
     Indication: MENTAL DISORDER
     Dosage: 50 MG, 1X/DAY
     Route: 048
     Dates: start: 20100401, end: 20110406

REACTIONS (5)
  - DIZZINESS [None]
  - ABNORMAL DREAMS [None]
  - PARAESTHESIA [None]
  - FEELING ABNORMAL [None]
  - IRRITABILITY [None]
